FAERS Safety Report 7128656-3 (Version None)
Quarter: 2010Q4

REPORT INFORMATION
  Report Type: 
  Country: None (occurrence: None)
  Receive Date: 20101103
  Receipt Date: 20101026
  Transmission Date: 20110411
  Serious: Yes (Hospitalization)
  Sender: FDA-Public Use
  Company Number: 2009SP033713

PATIENT
  Age: 22 Year
  Sex: Female
  Weight: 81.6475 kg

DRUGS (8)
  1. NUVARING [Suspect]
     Indication: CONTRACEPTION
     Dates: start: 20041206, end: 20050101
  2. NUVARING [Suspect]
     Indication: CONTRACEPTION
     Dates: start: 20050430
  3. NUVARING [Suspect]
     Indication: CONTRACEPTION
     Dates: start: 20070813
  4. ORTHO TRI-CYCLEN [Suspect]
     Indication: CONTRACEPTION
     Dates: start: 20060118
  5. LO/OVRAL [Suspect]
     Indication: PRODUCT USED FOR UNKNOWN INDICATION
     Dates: start: 20060411
  6. IBUPROFEN [Concomitant]
  7. LOPRESSOR [Concomitant]
  8. LORTAB [Concomitant]

REACTIONS (23)
  - ANXIETY [None]
  - ARTHROPATHY [None]
  - BACK PAIN [None]
  - BLOOD PRESSURE INCREASED [None]
  - DEPRESSION [None]
  - FLANK PAIN [None]
  - HEADACHE [None]
  - HYDRONEPHROSIS [None]
  - INSOMNIA [None]
  - JOINT SPRAIN [None]
  - LOBAR PNEUMONIA [None]
  - MENORRHAGIA [None]
  - MUSCLE STRAIN [None]
  - NEPHROLITHIASIS [None]
  - OEDEMA PERIPHERAL [None]
  - PELVIC INFLAMMATORY DISEASE [None]
  - PELVIC PAIN [None]
  - PLEURAL EFFUSION [None]
  - PREGNANCY WITH CONTRACEPTIVE DEVICE [None]
  - PULMONARY EMBOLISM [None]
  - ROAD TRAFFIC ACCIDENT [None]
  - VAGINAL DISCHARGE [None]
  - VAGINAL HAEMORRHAGE [None]
